FAERS Safety Report 23626167 (Version 1)
Quarter: 2024Q1

REPORT INFORMATION
  Report Type: Spontaneous
  Country: FR (occurrence: FR)
  Receive Date: 20240313
  Receipt Date: 20240313
  Transmission Date: 20240410
  Serious: Yes (Other)
  Sender: FDA-Public Use
  Company Number: FR-B.Braun Medical Inc.-2154303

PATIENT
  Age: 21 Year
  Sex: Female

DRUGS (5)
  1. ACETAMINOPHEN [Suspect]
     Active Substance: ACETAMINOPHEN
     Route: 042
  2. CAFFEINE [Suspect]
     Active Substance: CAFFEINE
  3. MORPHINE [Concomitant]
     Active Substance: MORPHINE
  4. NOSCAPINE [Suspect]
     Active Substance: NOSCAPINE
  5. HEROIN [Suspect]
     Active Substance: DIAMORPHINE

REACTIONS (3)
  - Substance use disorder [Unknown]
  - Tachycardia [Recovered/Resolved]
  - Headache [Recovered/Resolved]
